FAERS Safety Report 22327883 (Version 1)
Quarter: 2023Q2

REPORT INFORMATION
  Report Type: Spontaneous
  Country: US (occurrence: US)
  Receive Date: 20230516
  Receipt Date: 20230516
  Transmission Date: 20230722
  Serious: No
  Sender: FDA-Public Use
  Company Number: US-RADIUS HEALTH INC.-2023US000428

PATIENT
  Sex: Female

DRUGS (1)
  1. TYMLOS [Suspect]
     Active Substance: ABALOPARATIDE
     Indication: Product used for unknown indication
     Dosage: 80 MCG, DAILY
     Route: 058

REACTIONS (7)
  - Musculoskeletal discomfort [Unknown]
  - Rhinorrhoea [Unknown]
  - Arthralgia [Unknown]
  - Headache [Unknown]
  - Abdominal pain upper [Unknown]
  - Injection site pain [Unknown]
  - Product dose omission issue [Unknown]
